FAERS Safety Report 12289441 (Version 1)
Quarter: 2016Q2

REPORT INFORMATION
  Report Type: Spontaneous
  Country: US (occurrence: None)
  Receive Date: 20160420
  Receipt Date: 20160420
  Transmission Date: 20160815
  Serious: Yes (Life-Threatening, Disabling, Other)
  Sender: FDA-Public Use
  Company Number: None

PATIENT
  Age: 63 Year
  Sex: Male
  Weight: 81.65 kg

DRUGS (3)
  1. PROTONIX [Suspect]
     Active Substance: PANTOPRAZOLE SODIUM
     Indication: GASTROOESOPHAGEAL REFLUX DISEASE
  2. VITAMINE COMPLEX [Concomitant]
  3. OCTREOTIDE LAR [Concomitant]
     Active Substance: OCTREOTIDE

REACTIONS (2)
  - Gastrinoma malignant [None]
  - Drug dependence [None]

NARRATIVE: CASE EVENT DATE: 20160324
